FAERS Safety Report 8334352-7 (Version None)
Quarter: 2012Q2

REPORT INFORMATION
  Report Type: 
  Country: None (occurrence: None)
  Receive Date: 20120503
  Receipt Date: 20120420
  Transmission Date: 20120825
  Serious: Yes (Death, Other)
  Sender: FDA-Public Use
  Company Number: AU-CELGENEUS-008-21880-12033144

PATIENT
  Sex: Female

DRUGS (9)
  1. REVLIMID [Suspect]
     Route: 048
     Dates: end: 20120103
  2. DEXAMETHASONE [Concomitant]
     Dosage: 40 MILLIGRAM
     Route: 065
     Dates: start: 20111118, end: 20111122
  3. OXYCODONE HCL [Concomitant]
     Indication: PAIN
     Route: 065
     Dates: start: 20111221, end: 20120212
  4. FLUCONAZOLE [Concomitant]
     Indication: ANTIFUNGAL PROPHYLAXIS
     Dosage: 200 MILLIGRAM
     Route: 065
     Dates: start: 20111101, end: 20120212
  5. MORPHINE [Concomitant]
     Indication: PAIN
     Dosage: 120 MILLIGRAM
     Route: 065
     Dates: start: 20111221, end: 20120212
  6. PREGABALIN [Concomitant]
     Indication: PAIN
     Dosage: 150 MILLIGRAM
     Route: 065
     Dates: start: 20111021, end: 20120212
  7. REVLIMID [Suspect]
     Dosage: 25 MILLIGRAM
     Route: 048
     Dates: start: 20111202
  8. RESPRIM [Concomitant]
     Route: 065
     Dates: start: 20111101, end: 20120212
  9. PREDNISOLONE [Concomitant]
     Dosage: 10 MILLIGRAM
     Route: 065
     Dates: start: 20120201, end: 20120212

REACTIONS (1)
  - NON-HODGKIN'S LYMPHOMA [None]
